FAERS Safety Report 25371869 (Version 1)
Quarter: 2025Q2

REPORT INFORMATION
  Report Type: Spontaneous
  Country: NL (occurrence: NL)
  Receive Date: 20250529
  Receipt Date: 20250529
  Transmission Date: 20250717
  Serious: Yes (Other)
  Sender: AUROBINDO
  Company Number: NL-LRB-01057318

PATIENT
  Age: 45 Year
  Sex: Male

DRUGS (1)
  1. PERINDOPRIL [Suspect]
     Active Substance: PERINDOPRIL
     Indication: Prophylaxis
     Dosage: 2 MILLIGRAM, EVERY HOUR [1 X PER DAG 1 STUK]
     Route: 048
     Dates: start: 20110808

REACTIONS (1)
  - Erectile dysfunction [Not Recovered/Not Resolved]
